FAERS Safety Report 5812553-7 (Version None)
Quarter: 2008Q3

REPORT INFORMATION
  Report Type: 
  Country: None (occurrence: None)
  Receive Date: 20080711
  Receipt Date: 20080626
  Transmission Date: 20090109
  Serious: Yes (Other)
  Sender: FDA-Public Use
  Company Number: S08-GER-02293-01

PATIENT
  Age: 23 Year
  Sex: Female

DRUGS (3)
  1. CITALOPRAM HYDROBROMIDE [Suspect]
     Dosage: 400 MG ONCE PO
     Route: 048
     Dates: start: 20080402, end: 20080402
  2. CITALOPRAM HYDROBROMIDE [Suspect]
  3. IBUPROFEN [Suspect]
     Dosage: 1600 MG ONCE PO
     Route: 048
     Dates: start: 20080402, end: 20080402

REACTIONS (7)
  - DYSPEPSIA [None]
  - ELECTROCARDIOGRAM T WAVE INVERSION [None]
  - HEART RATE IRREGULAR [None]
  - INTENTIONAL OVERDOSE [None]
  - NAUSEA [None]
  - SUICIDE ATTEMPT [None]
  - TACHYCARDIA [None]
